FAERS Safety Report 22589873 (Version 1)
Quarter: 2023Q2

REPORT INFORMATION
  Report Type: Spontaneous
  Country: US (occurrence: None)
  Receive Date: 20230609
  Receipt Date: 20230609
  Transmission Date: 20230721
  Serious: Yes (Other)
  Sender: FDA-Public Use
  Company Number: None

PATIENT
  Age: 70 Year
  Sex: Female
  Weight: 78.75 kg

DRUGS (8)
  1. METHOCARBAMOL [Suspect]
     Active Substance: METHOCARBAMOL
     Indication: Pain
     Dosage: OTHER QUANTITY : 1 TABLET(S);?FREQUENCY : EVERY 6 HOURS;?
     Dates: start: 20230507, end: 20230603
  2. SYNTHROID [Concomitant]
     Active Substance: LEVOTHYROXINE SODIUM
  3. AMLODIPINE BESYLATE [Concomitant]
     Active Substance: AMLODIPINE BESYLATE
  4. CACIUM 600 WITH  D3 [Concomitant]
  5. IRON 45 MG [Concomitant]
  6. MINERALS\VITAMINS [Concomitant]
     Active Substance: MINERALS\VITAMINS
  7. TYLENOL [Concomitant]
     Active Substance: ACETAMINOPHEN
  8. METHOCARBAMOL [Suspect]
     Active Substance: METHOCARBAMOL

REACTIONS (4)
  - Pruritus [None]
  - Rash [None]
  - Erythema [None]
  - Sleep disorder [None]

NARRATIVE: CASE EVENT DATE: 20230529
